FAERS Safety Report 15191944 (Version 3)
Quarter: 2018Q4

REPORT INFORMATION
  Report Type: Spontaneous
  Country: AT (occurrence: AT)
  Receive Date: 20180724
  Receipt Date: 20181015
  Transmission Date: 20190204
  Serious: Yes (Other)
  Sender: FDA-Public Use
  Company Number: PHHY2018AT051131

PATIENT
  Age: 50 Year
  Sex: Male

DRUGS (9)
  1. EBETREXAT [Suspect]
     Active Substance: METHOTREXATE SODIUM
     Indication: RHEUMATOID ARTHRITIS
     Dosage: 20 MG, QW
     Route: 065
  2. EBETREXAT [Suspect]
     Active Substance: METHOTREXATE SODIUM
     Dosage: 25 MG, QW
     Route: 065
     Dates: start: 20110424, end: 20110627
  3. EBETREXAT [Suspect]
     Active Substance: METHOTREXATE SODIUM
     Dosage: 25 MG, QW
     Route: 065
     Dates: start: 201311
  4. PREDNISOLONE. [Suspect]
     Active Substance: PREDNISOLONE
     Indication: RHEUMATOID ARTHRITIS
     Dosage: 10 MG, UNK
     Route: 065
  5. EBETREXAT [Suspect]
     Active Substance: METHOTREXATE SODIUM
     Dosage: 15 MG, QW
     Route: 065
     Dates: start: 20080409
  6. PREDNISOLONE. [Suspect]
     Active Substance: PREDNISOLONE
     Dosage: 2.5 MG, QD
     Route: 065
     Dates: start: 200311
  7. PREDNISOLONE. [Suspect]
     Active Substance: PREDNISOLONE
     Dosage: 5 MG, QD
     Route: 065
     Dates: start: 20080619
  8. EBETREXAT [Suspect]
     Active Substance: METHOTREXATE SODIUM
     Dosage: 30 MG, QW
     Route: 065
  9. OMEGAVEN [Suspect]
     Active Substance: FISH OIL
     Indication: PRODUCT USED FOR UNKNOWN INDICATION
     Route: 065

REACTIONS (11)
  - Sensation of foreign body [Recovered/Resolved]
  - Off label use [Unknown]
  - Joint effusion [Unknown]
  - Platelet count decreased [Recovering/Resolving]
  - Thrombosis [Unknown]
  - Frustration tolerance decreased [Unknown]
  - Adverse event [Unknown]
  - Arthritis [Unknown]
  - Condition aggravated [Recovering/Resolving]
  - Bronchitis [Unknown]
  - Paracentesis [Unknown]

NARRATIVE: CASE EVENT DATE: 20080619
